FAERS Safety Report 4597426-2 (Version None)
Quarter: 2005Q1

REPORT INFORMATION
  Report Type: 
  Country: None (occurrence: None)
  Receive Date: 20050303
  Receipt Date: 20050224
  Transmission Date: 20050727
  Serious: Yes (Other)
  Sender: FDA-Public Use
  Company Number: US-JNJFOC-20050206406

PATIENT
  Age: 73 Year
  Sex: Female

DRUGS (7)
  1. ULTRAM [Suspect]
     Route: 049
  2. DURAGESIC-100 [Concomitant]
  3. PREVACID [Concomitant]
  4. VICODIN [Concomitant]
  5. VICODIN [Concomitant]
  6. MICALCIN [Concomitant]
  7. INHALERS [Concomitant]

REACTIONS (1)
  - INTENTIONAL MISUSE [None]
